FAERS Safety Report 4471547-7 (Version None)
Quarter: 2004Q4

REPORT INFORMATION
  Report Type: 
  Country: None (occurrence: None)
  Receive Date: 20041006
  Receipt Date: 20040923
  Transmission Date: 20050328
  Serious: Yes (Death, Hospitalization)
  Sender: FDA-Public Use
  Company Number: HQWYE205823SEP04

PATIENT
  Age: 26 Year
  Sex: Male

DRUGS (1)
  1. PROTONIX [Suspect]
     Dosage: INTRAVENOUS
     Route: 042
     Dates: start: 20040101, end: 20040101

REACTIONS (3)
  - CARDIAC ARREST [None]
  - CONVULSION [None]
  - NONSPECIFIC REACTION [None]
